FAERS Safety Report 16082875 (Version 2)
Quarter: 2019Q4

REPORT INFORMATION
  Report Type: Spontaneous
  Country: CA (occurrence: CA)
  Receive Date: 20190318
  Receipt Date: 20191120
  Transmission Date: 20200122
  Serious: Yes (Other)
  Sender: FDA-Public Use
  Company Number: CA-TEVA-2019-CA-1022919

PATIENT
  Age: 60 Year
  Sex: Female

DRUGS (30)
  1. METHOTREXATE. [Suspect]
     Active Substance: METHOTREXATE
     Indication: RHEUMATOID ARTHRITIS
     Route: 065
  2. HUMIRA [Suspect]
     Active Substance: ADALIMUMAB
     Indication: PRODUCT USED FOR UNKNOWN INDICATION
     Route: 058
  3. HYDROMORPHONE HYDROCHLORIDE. [Concomitant]
     Active Substance: HYDROMORPHONE HYDROCHLORIDE
     Route: 065
  4. CALCIUM [Concomitant]
     Active Substance: CALCIUM
     Route: 065
  5. KENALOG [Concomitant]
     Active Substance: TRIAMCINOLONE ACETONIDE
     Route: 065
  6. NITROGLYCERIN. [Concomitant]
     Active Substance: NITROGLYCERIN
     Route: 065
  7. ENBREL [Suspect]
     Active Substance: ETANERCEPT
     Indication: PRODUCT USED FOR UNKNOWN INDICATION
     Route: 065
  8. PLAQUENIL [Suspect]
     Active Substance: HYDROXYCHLOROQUINE SULFATE
     Indication: PRODUCT USED FOR UNKNOWN INDICATION
     Route: 065
  9. ERGOCALCIFEROL. [Concomitant]
     Active Substance: ERGOCALCIFEROL
     Route: 065
  10. DEFLAZACORT [Concomitant]
     Active Substance: DEFLAZACORT
     Route: 065
  11. ERGOCALCIFEROL. [Concomitant]
     Active Substance: ERGOCALCIFEROL
     Route: 065
  12. RISEDRONATE [Concomitant]
     Active Substance: RISEDRONATE SODIUM
     Route: 065
  13. XELJANZ [Concomitant]
     Active Substance: TOFACITINIB CITRATE
     Route: 065
  14. DILAUDID [Concomitant]
     Active Substance: HYDROMORPHONE HYDROCHLORIDE
     Route: 065
  15. JANUVIA [Concomitant]
     Active Substance: SITAGLIPTIN PHOSPHATE
     Route: 065
  16. PREGABALIN. [Concomitant]
     Active Substance: PREGABALIN
     Route: 065
  17. ROSUVASTATIN CALCIUM. [Concomitant]
     Active Substance: ROSUVASTATIN CALCIUM
     Route: 065
  18. ARAVA [Suspect]
     Active Substance: LEFLUNOMIDE
     Indication: PRODUCT USED FOR UNKNOWN INDICATION
     Dosage: 20 MILLIGRAM DAILY;
     Route: 065
  19. REMICADE [Suspect]
     Active Substance: INFLIXIMAB
     Indication: PRODUCT USED FOR UNKNOWN INDICATION
     Route: 042
  20. ASPIRIN. [Concomitant]
     Active Substance: ASPIRIN
     Route: 065
  21. LACTOBACILLUS ACIDOPHILUS [Concomitant]
     Active Substance: LACTOBACILLUS ACIDOPHILUS
     Route: 065
  22. METRONIDAZOLE. [Concomitant]
     Active Substance: METRONIDAZOLE
     Route: 065
  23. TYLENOL [Concomitant]
     Active Substance: ACETAMINOPHEN
     Route: 065
  24. AZATHIOPRINE. [Suspect]
     Active Substance: AZATHIOPRINE
     Indication: PRODUCT USED FOR UNKNOWN INDICATION
     Route: 065
  25. PREDNISONE. [Suspect]
     Active Substance: PREDNISONE
     Indication: PRODUCT USED FOR UNKNOWN INDICATION
     Route: 065
  26. SULFASALAZINE. [Suspect]
     Active Substance: SULFASALAZINE
     Indication: RHEUMATOID ARTHRITIS
     Route: 065
  27. LIDOCAINE. [Concomitant]
     Active Substance: LIDOCAINE
     Route: 065
  28. TRIAMCINOLONE [Concomitant]
     Active Substance: TRIAMCINOLONE
  29. PANTOLOC [Concomitant]
     Active Substance: PANTOPRAZOLE SODIUM
     Route: 065
  30. SALBUTAMOL [Concomitant]
     Active Substance: ALBUTEROL
     Route: 065

REACTIONS (9)
  - Skin ulcer [Not Recovered/Not Resolved]
  - Bursitis infective [Not Recovered/Not Resolved]
  - Localised infection [Not Recovered/Not Resolved]
  - Bronchiectasis [Not Recovered/Not Resolved]
  - Therapeutic product effect incomplete [Not Recovered/Not Resolved]
  - Pneumonia [Not Recovered/Not Resolved]
  - Staphylococcal infection [Not Recovered/Not Resolved]
  - Infection [Not Recovered/Not Resolved]
  - Rheumatoid arthritis [Not Recovered/Not Resolved]
